FAERS Safety Report 7390426-9 (Version None)
Quarter: 2011Q2

REPORT INFORMATION
  Report Type: 
  Country: None (occurrence: None)
  Receive Date: 20110401
  Receipt Date: 20110330
  Transmission Date: 20111010
  Serious: Yes (Other)
  Sender: FDA-Public Use
  Company Number: US-AMGEN-USASP2011013838

PATIENT
  Age: 86 Year
  Sex: Female
  Weight: 85.714 kg

DRUGS (1)
  1. PROLIA [Suspect]
     Indication: SENILE OSTEOPOROSIS
     Dosage: 60 MG, Q6MO
     Route: 042
     Dates: start: 20110303, end: 20110303

REACTIONS (3)
  - ANXIETY [None]
  - DYSPNOEA [None]
  - RESTLESSNESS [None]
